FAERS Safety Report 25038662 (Version 2)
Quarter: 2025Q1

REPORT INFORMATION
  Report Type: Report from Study
  Country: DE (occurrence: DE)
  Receive Date: 20250304
  Receipt Date: 20250320
  Transmission Date: 20250409
  Serious: Yes (Death, Hospitalization, Other)
  Sender: JOHNSON AND JOHNSON
  Company Number: DE-JNJFOC-20191019356

PATIENT
  Age: 75 Year
  Sex: Male

DRUGS (1)
  1. TRABECTEDIN [Suspect]
     Active Substance: TRABECTEDIN
     Indication: Sarcoma
     Route: 042
     Dates: start: 201905

REACTIONS (3)
  - Acute kidney injury [Fatal]
  - Neutropenic sepsis [Fatal]
  - Neoplasm progression [Unknown]

NARRATIVE: CASE EVENT DATE: 20190701
